FAERS Safety Report 5867116-4 (Version None)
Quarter: 2008Q3

REPORT INFORMATION
  Report Type: 
  Country: None (occurrence: None)
  Receive Date: 20080828
  Receipt Date: 20080828
  Transmission Date: 20090109
  Serious: Yes (Hospitalization)
  Sender: FDA-Public Use
  Company Number: None

PATIENT
  Age: 70 Year
  Sex: Male
  Weight: 89.77 kg

DRUGS (1)
  1. NIACIN [Suspect]
     Indication: HYPERLIPIDAEMIA
     Dosage: 500 MG EVERY DAY PO
     Route: 048
     Dates: start: 20021002, end: 20070927

REACTIONS (3)
  - ECZEMA [None]
  - RASH ERYTHEMATOUS [None]
  - RASH PRURITIC [None]
